FAERS Safety Report 13030256 (Version 2)
Quarter: 2016Q4

REPORT INFORMATION
  Report Type: Spontaneous
  Country: JP (occurrence: JP)
  Receive Date: 20161215
  Receipt Date: 20161221
  Transmission Date: 20170207
  Serious: Yes (Other)
  Sender: FDA-Public Use
  Company Number: JP-009507513-1612JPN004928

PATIENT
  Sex: Male

DRUGS (1)
  1. NU-LOTAN TABLETS 100MG [Suspect]
     Active Substance: LOSARTAN
     Dosage: 100 MG, QD
     Route: 048
     Dates: end: 201612

REACTIONS (1)
  - Gallbladder cancer [Unknown]
